FAERS Safety Report 4930737-7 (Version None)
Quarter: 2006Q1

REPORT INFORMATION
  Report Type: 
  Country: None (occurrence: None)
  Receive Date: 20060227
  Receipt Date: 20041201
  Transmission Date: 20060701
  Serious: Yes (Other)
  Sender: FDA-Public Use
  Company Number: US-ELI_LILLY_AND_CO-US_0412108863

PATIENT
  Age: 62 Year
  Sex: Male

DRUGS (5)
  1. PERMAX [Suspect]
     Indication: RESTLESS LEGS SYNDROME
     Dosage: SEE IMAGE
     Dates: start: 20020101, end: 20030101
  2. KLONOPIN [Concomitant]
  3. PRAMIPEXOLE DIHYDROCHLORIDE [Concomitant]
  4. DIHYDROCHLORIDE [Concomitant]
  5. NEURONTIN [Concomitant]

REACTIONS (11)
  - AORTIC VALVE INCOMPETENCE [None]
  - AORTIC VALVE SCLEROSIS [None]
  - CARDIAC VALVE DISEASE [None]
  - CHOLELITHIASIS [None]
  - DRUG INEFFECTIVE [None]
  - MITRAL VALVE INCOMPETENCE [None]
  - MITRAL VALVE SCLEROSIS [None]
  - NIGHTMARE [None]
  - SLEEP APNOEA SYNDROME [None]
  - TRICUSPID VALVE INCOMPETENCE [None]
  - UMBILICAL HERNIA [None]
